FAERS Safety Report 20663222 (Version 7)
Quarter: 2022Q4

REPORT INFORMATION
  Report Type: Report from Study
  Country: IE (occurrence: IE)
  Receive Date: 20220401
  Receipt Date: 20221212
  Transmission Date: 20230113
  Serious: Yes (Other)
  Sender: FDA-Public Use
  Company Number: IE-JNJFOC-20220237655

PATIENT
  Age: 62 Year
  Sex: Male

DRUGS (5)
  1. ABIRATERONE [Suspect]
     Active Substance: ABIRATERONE
     Indication: Prostate cancer metastatic
     Dosage: 1000 MILLIGRAM, QD
     Route: 048
     Dates: start: 20220215
  2. PREDNISOLONE [Concomitant]
     Active Substance: PREDNISOLONE
     Indication: Product used for unknown indication
     Dosage: 10 MILLIGRAM, QD, ROUTE OF ADMIN: OTHER
     Route: 065
  3. PREDNISOLONE [Concomitant]
     Active Substance: PREDNISOLONE
     Indication: Product used for unknown indication
  4. ROSUVASTATIN [Concomitant]
     Active Substance: ROSUVASTATIN
     Indication: Product used for unknown indication
     Dosage: 10 MILLIGRAM, QD, ROUTE OF ADMIN: OTHER
     Route: 065
  5. ROSUVASTATIN [Concomitant]
     Active Substance: ROSUVASTATIN
     Indication: Product used for unknown indication

REACTIONS (5)
  - Sepsis [Unknown]
  - Hypertension [Not Recovered/Not Resolved]
  - Peripheral swelling [Recovering/Resolving]
  - COVID-19 [Unknown]
  - Blood test abnormal [Unknown]

NARRATIVE: CASE EVENT DATE: 20220301
